FAERS Safety Report 12689963 (Version 1)
Quarter: 2016Q3

REPORT INFORMATION
  Report Type: Spontaneous
  Country: US (occurrence: US)
  Receive Date: 20160826
  Receipt Date: 20160826
  Transmission Date: 20161109
  Serious: No
  Sender: FDA-Public Use
  Company Number: US-009507513-1607USA007970

PATIENT
  Age: 25 Year
  Sex: Female

DRUGS (1)
  1. NEXPLANON [Suspect]
     Active Substance: ETONOGESTREL
     Indication: CONTRACEPTION
     Dosage: 1 DF, 68 MG EVERY 3 YEARS
     Route: 059
     Dates: start: 201307, end: 20160718

REACTIONS (2)
  - Product quality issue [Unknown]
  - Device breakage [Recovered/Resolved]
